FAERS Safety Report 7157268-0 (Version None)
Quarter: 2010Q4

REPORT INFORMATION
  Report Type: 
  Country: None (occurrence: None)
  Receive Date: 20101214
  Receipt Date: 20101209
  Transmission Date: 20110411
  Serious: Yes (Death)
  Sender: FDA-Public Use
  Company Number: PHEH2009US14797

PATIENT
  Sex: Female

DRUGS (7)
  1. EXJADE [Suspect]
     Indication: MYELODYSPLASTIC SYNDROME
     Dosage: 2000 MG, QD
     Route: 048
     Dates: start: 20090828
  2. FOLIC ACID [Concomitant]
  3. ARICEPT [Concomitant]
  4. DETROL [Concomitant]
  5. OXYBUTYNIN [Concomitant]
  6. LEVOXYL [Concomitant]
  7. PROCHLORPERAZINE [Concomitant]

REACTIONS (2)
  - ABDOMINAL PAIN UPPER [None]
  - DEATH [None]
